FAERS Safety Report 5175070-6 (Version None)
Quarter: 2006Q4

REPORT INFORMATION
  Report Type: 
  Country: None (occurrence: None)
  Receive Date: 20061214
  Receipt Date: 20060525
  Transmission Date: 20070319
  Serious: No
  Sender: FDA-Public Use
  Company Number: US-AMGEN-KDL180977

PATIENT
  Sex: Female

DRUGS (1)
  1. ENBREL [Suspect]
     Indication: ANKYLOSING SPONDYLITIS
     Route: 058
     Dates: start: 20060203

REACTIONS (4)
  - DRY EYE [None]
  - DRY MOUTH [None]
  - MUSCULOSKELETAL STIFFNESS [None]
  - TOOTH DISCOLOURATION [None]
